FAERS Safety Report 6294743-5 (Version None)
Quarter: 2009Q3

REPORT INFORMATION
  Report Type: 
  Country: None (occurrence: None)
  Receive Date: 20090803
  Receipt Date: 20090729
  Transmission Date: 20100115
  Serious: Yes (Life-Threatening, Hospitalization)
  Sender: FDA-Public Use
  Company Number: FR-JNJFOC-20090708956

PATIENT
  Sex: Male
  Weight: 78 kg

DRUGS (9)
  1. DURAGESIC-100 [Suspect]
     Indication: DRUG USE FOR UNKNOWN INDICATION
     Route: 062
  2. ELOXATIN [Suspect]
     Indication: DRUG USE FOR UNKNOWN INDICATION
     Route: 042
  3. ERBITUX [Suspect]
     Indication: DRUG USE FOR UNKNOWN INDICATION
     Route: 042
  4. FLUOROURACIL [Suspect]
     Indication: DRUG USE FOR UNKNOWN INDICATION
  5. METHYLPREDNISOLONE [Concomitant]
  6. ONDANSETRON HCL [Concomitant]
  7. PRIMPERAN [Concomitant]
  8. EMEND [Concomitant]
  9. EMEND [Concomitant]

REACTIONS (3)
  - COMA [None]
  - CONVULSION [None]
  - RENAL FAILURE ACUTE [None]
